FAERS Safety Report 5369205-X (Version None)
Quarter: 2007Q2

REPORT INFORMATION
  Report Type: 
  Country: None (occurrence: None)
  Receive Date: 20070621
  Receipt Date: 20070615
  Transmission Date: 20071010
  Serious: Yes (Hospitalization)
  Sender: FDA-Public Use
  Company Number: 2007BI010083

PATIENT
  Age: 59 Year
  Sex: Male

DRUGS (6)
  1. NATALIZUMAB [Suspect]
     Indication: MULTIPLE SCLEROSIS
     Dosage: 300 MG;QM;IV
     Route: 042
     Dates: start: 20070307, end: 20070101
  2. TOPAMAX [Concomitant]
  3. VALIUM [Concomitant]
  4. CYMBALTA [Concomitant]
  5. DANTROLENE SODIUM [Concomitant]
  6. DARVOCET [Concomitant]

REACTIONS (2)
  - DIPLOPIA [None]
  - MULTIPLE SCLEROSIS [None]
